FAERS Safety Report 23589413 (Version 1)
Quarter: 2024Q1

REPORT INFORMATION
  Report Type: Report from Study
  Country: US (occurrence: US)
  Receive Date: 20240304
  Receipt Date: 20240304
  Transmission Date: 20240410
  Serious: Yes (Other)
  Sender: FDA-Public Use
  Company Number: US-ABBVIE-5657315

PATIENT
  Sex: Male

DRUGS (1)
  1. HUMIRA [Suspect]
     Active Substance: ADALIMUMAB
     Indication: Rheumatoid arthritis
     Route: 058
     Dates: start: 20220502

REACTIONS (4)
  - Systemic lupus erythematosus [Unknown]
  - Type 2 diabetes mellitus [Unknown]
  - Autoimmune disorder [Unknown]
  - Rheumatoid arthritis [Unknown]
